FAERS Safety Report 24673453 (Version 1)
Quarter: 2024Q4

REPORT INFORMATION
  Report Type: Report from Study
  Country: CA (occurrence: CA)
  Receive Date: 20241128
  Receipt Date: 20241128
  Transmission Date: 20250114
  Serious: Yes (Other)
  Sender: SANDOZ
  Company Number: CA-SANDOZ-SDZ2024CA068075

PATIENT
  Sex: Male

DRUGS (2)
  1. HYRIMOZ [Suspect]
     Active Substance: ADALIMUMAB-ADAZ
     Dosage: 40MG WEEKLY
     Route: 058
  2. HYRIMOZ [Suspect]
     Active Substance: ADALIMUMAB-ADAZ
     Indication: Crohn^s disease
     Dosage: 40MG SC;EVERY TWO WEEKS
     Route: 058
     Dates: start: 20220718

REACTIONS (5)
  - Faecal calprotectin increased [Unknown]
  - Procedural pain [Unknown]
  - Abdominal pain [Unknown]
  - Dysphagia [Unknown]
  - Off label use [Unknown]
